FAERS Safety Report 7889751-4 (Version None)
Quarter: 2011Q4

REPORT INFORMATION
  Report Type: 
  Country: None (occurrence: None)
  Receive Date: 20111103
  Receipt Date: 20111026
  Transmission Date: 20120403
  Serious: Yes (Other)
  Sender: FDA-Public Use
  Company Number: MY-BAXTER-2011BH034723

PATIENT
  Age: 26 Year
  Sex: Male

DRUGS (17)
  1. CYTARABINE [Suspect]
     Route: 042
  2. ACETAMINOPHEN [Concomitant]
     Indication: PROPHYLAXIS
     Route: 048
  3. LEUCOVORIN CALCIUM [Concomitant]
     Indication: T-CELL TYPE ACUTE LEUKAEMIA
     Route: 042
  4. FILGRASTIM [Concomitant]
     Indication: T-CELL TYPE ACUTE LEUKAEMIA
     Route: 058
  5. CYCLOPHOSPHAMIDE [Suspect]
     Indication: T-CELL TYPE ACUTE LEUKAEMIA
     Route: 042
  6. METHOTREXATE [Suspect]
     Route: 042
  7. ACYCLOVIR [Concomitant]
     Indication: PROPHYLAXIS
     Route: 048
  8. METHOTREXATE [Suspect]
     Indication: T-CELL TYPE ACUTE LEUKAEMIA
     Route: 037
  9. LEUCOVORIN CALCIUM [Concomitant]
     Route: 042
  10. DEXAMETHASONE [Suspect]
     Indication: T-CELL TYPE ACUTE LEUKAEMIA
     Route: 065
  11. METHOTREXATE [Suspect]
     Route: 042
  12. DOXORUBICIN HCL [Suspect]
     Indication: T-CELL TYPE ACUTE LEUKAEMIA
     Route: 042
  13. VINCRISTINE SULFATE [Suspect]
     Indication: T-CELL TYPE ACUTE LEUKAEMIA
     Route: 040
  14. CYTARABINE [Suspect]
     Indication: T-CELL TYPE ACUTE LEUKAEMIA
     Route: 037
  15. DIPHENHYDRAMINE HCL [Concomitant]
     Indication: PROPHYLAXIS
     Route: 042
  16. ALEMTUZUMAB [Suspect]
     Indication: T-CELL TYPE ACUTE LEUKAEMIA
     Route: 058
  17. MESNA [Concomitant]
     Indication: T-CELL TYPE ACUTE LEUKAEMIA
     Route: 042

REACTIONS (2)
  - CYTOMEGALOVIRUS INFECTION [None]
  - NEUTROPENIA [None]
